FAERS Safety Report 19495290 (Version 2)
Quarter: 2021Q3

REPORT INFORMATION
  Report Type: Spontaneous
  Country: US (occurrence: US)
  Receive Date: 20210706
  Receipt Date: 20210927
  Transmission Date: 20211014
  Serious: Yes (Hospitalization, Other)
  Sender: FDA-Public Use
  Company Number: US-REGENERON PHARMACEUTICALS, INC.-2021-64122

PATIENT

DRUGS (19)
  1. PRALUENT [Suspect]
     Active Substance: ALIROCUMAB
     Indication: HYPERCHOLESTEROLAEMIA
     Dosage: 75 MG/ML, Q2W
     Route: 058
  2. ASPIRIN [ACETYLSALICYLIC ACID] [Concomitant]
     Active Substance: ASPIRIN
     Indication: CHRONIC LEFT VENTRICULAR FAILURE
     Dosage: 81 MG, QD
     Route: 048
     Dates: start: 20210702
  3. ACIDOPHILUS [Concomitant]
     Active Substance: LACTOBACILLUS ACIDOPHILUS
     Indication: IRRITABLE BOWEL SYNDROME
     Dosage: UNK, QD
     Route: 048
     Dates: start: 20210207
  4. ESCITALOPRAM OXALATE. [Concomitant]
     Active Substance: ESCITALOPRAM OXALATE
     Indication: MAJOR DEPRESSION
     Dosage: 5 MG, BID
     Route: 048
     Dates: start: 20210702
  5. FLEET ENEMA [Concomitant]
     Active Substance: SODIUM PHOSPHATE, DIBASIC\SODIUM PHOSPHATE, MONOBASIC
     Indication: CONSTIPATION
     Dosage: ONCE A DAY ? PRN; HS
     Route: 054
     Dates: start: 20210702
  6. METOPROLOL SUCCINATE. [Concomitant]
     Active Substance: METOPROLOL SUCCINATE
     Indication: HYPERTENSIVE HEART DISEASE
     Dosage: 25 MG, QD
     Dates: start: 20210702
  7. NITROGLYCERIN. [Concomitant]
     Active Substance: NITROGLYCERIN
     Indication: CHEST PAIN
     Dosage: AS NEEDED; PRN1, PRN2, PRN3
     Route: 060
     Dates: start: 20210702
  8. NOVOLIN 10R [Concomitant]
     Indication: TYPE 2 DIABETES MELLITUS
     Dosage: 100 DF, AS NECESSARY
     Route: 058
     Dates: start: 20210702
  9. MUCINEX [Concomitant]
     Active Substance: GUAIFENESIN
     Indication: CHRONIC OBSTRUCTIVE PULMONARY DISEASE
     Dosage: 600 MG, BID
     Route: 048
     Dates: start: 20210702
  10. OXYGEN. [Concomitant]
     Active Substance: OXYGEN
     Indication: DYSPNOEA
     Dosage: PRN1 PRN2 PRN3
  11. ELIQUIS [Concomitant]
     Active Substance: APIXABAN
     Indication: ATRIAL FIBRILLATION
     Dosage: 5 MG, BID
  12. NICOTINE. [Concomitant]
     Active Substance: NICOTINE
     Indication: TOBACCO USER
     Dosage: 14 MG, QD
     Route: 062
     Dates: start: 20210702, end: 20210808
  13. OMEPRAZOLE. [Concomitant]
     Active Substance: OMEPRAZOLE
     Indication: REFLUX GASTRITIS
     Dosage: 20 MG, QD
     Dates: start: 20210702
  14. APLISOL [Concomitant]
     Active Substance: TUBERCULIN PURIFIED PROTEIN DERIVATIVE
     Indication: INVESTIGATION
     Dosage: 5 TUB. UNIT / 01 ML
     Route: 023
     Dates: start: 20210702, end: 20210702
  15. BISACODYL. [Concomitant]
     Active Substance: BISACODYL
     Indication: CONSTIPATION
     Dosage: GIVE ONE ON THE MORNINIG OF THE 4TH DAY IF NO BM  ONCE A DAY PRN PRN 1
     Route: 054
     Dates: start: 20210702
  16. FUROSEMIDE. [Concomitant]
     Active Substance: FUROSEMIDE
     Indication: CHRONIC LEFT VENTRICULAR FAILURE
     Dosage: 40 MG, QD
     Route: 048
     Dates: start: 20210702, end: 20210707
  17. JARDIANCE [Concomitant]
     Active Substance: EMPAGLIFLOZIN
     Indication: TYPE 2 DIABETES MELLITUS
     Dosage: 10 MG, QD
     Route: 048
     Dates: start: 20210702
  18. BUPROPION. [Concomitant]
     Active Substance: BUPROPION
     Indication: MAJOR DEPRESSION
     Dosage: 150 MG, BID
     Route: 048
     Dates: start: 20210702
  19. EZETIMIBE. [Concomitant]
     Active Substance: EZETIMIBE
     Indication: HYPERLIPIDAEMIA
     Dosage: 10 MG, QD
     Dates: start: 20210702

REACTIONS (2)
  - Cerebrovascular accident [Not Recovered/Not Resolved]
  - Product dose omission issue [Unknown]

NARRATIVE: CASE EVENT DATE: 202102
